FAERS Safety Report 19501083 (Version 2)
Quarter: 2021Q3

REPORT INFORMATION
  Report Type: Spontaneous
  Country: US (occurrence: US)
  Receive Date: 20210707
  Receipt Date: 20210910
  Transmission Date: 20211014
  Serious: Yes (Hospitalization)
  Sender: FDA-Public Use
  Company Number: US-TEVA-2021-US-1928852

PATIENT
  Age: 61 Year
  Sex: Female

DRUGS (5)
  1. TRIAMCINOLONE [Concomitant]
     Active Substance: TRIAMCINOLONE
     Indication: DRUG THERAPY
     Dosage: TOTAL VOLUME OF 2.5 ML, CONSISTING OF A MIX OF 1.0 ML OF TRIAMCINOLONE 40 MG/ML AND 1.5 ML OF 0.5...
     Route: 014
  2. BUPIVACAINE. [Concomitant]
     Active Substance: BUPIVACAINE
     Indication: INDUCTION OF ANAESTHESIA
     Dosage: TOTAL VOLUME OF 2.5 ML, CONSISTING OF A MIX OF 1.0 ML OF TRIAMCINOLONE 40 MG/ML AND 1.5 ML OF 0.5...
     Route: 014
  3. ASPIRIN. [Suspect]
     Active Substance: ASPIRIN
     Indication: ANTIPLATELET THERAPY
     Dosage: 81 MILLIGRAM DAILY;
     Route: 065
  4. LIDOCAINE. [Concomitant]
     Active Substance: LIDOCAINE
     Indication: INDUCTION OF ANAESTHESIA
     Dosage: THE SKIN AND SUBCUTANEOUS TISSUE WERE ANESTHETISED USING 3 ML OF 1% PLAIN LIDOCAINE WITH A 1.5?IN...
     Route: 065
  5. WARFARIN [Suspect]
     Active Substance: WARFARIN
     Indication: ATRIAL FIBRILLATION
     Dosage: 5 MILLIGRAM DAILY;
     Route: 065

REACTIONS (4)
  - Sensory disturbance [Unknown]
  - Haematoma [Recovered/Resolved]
  - Urinary retention [Unknown]
  - Muscular weakness [Unknown]
